FAERS Safety Report 16023022 (Version 1)
Quarter: 2019Q1

REPORT INFORMATION
  Report Type: Spontaneous
  Country: US (occurrence: US)
  Receive Date: 20190204
  Receipt Date: 20190204
  Transmission Date: 20190418
  Serious: Yes (Other)
  Sender: FDA-Public Use
  Company Number: None

PATIENT
  Age: 58 Year
  Sex: Male
  Weight: 88.45 kg

DRUGS (1)
  1. SEROQUEL [Suspect]
     Active Substance: QUETIAPINE FUMARATE
     Indication: SCHIZOAFFECTIVE DISORDER
     Dosage: 2018
     Route: 048

REACTIONS (6)
  - Aggression [None]
  - Affective disorder [None]
  - Impulsive behaviour [None]
  - Condition aggravated [None]
  - Schizoaffective disorder [None]
  - Product substitution issue [None]

NARRATIVE: CASE EVENT DATE: 20180112
